FAERS Safety Report 5675308-2 (Version None)
Quarter: 2008Q2

REPORT INFORMATION
  Report Type: 
  Country: None (occurrence: None)
  Receive Date: 20080307
  Receipt Date: 20070918
  Transmission Date: 20081010
  Serious: Yes (Other)
  Sender: FDA-Public Use
  Company Number: US200709003741

PATIENT
  Age: 48 Year
  Sex: Female

DRUGS (7)
  1. GEMZAR [Suspect]
     Indication: PANCREATIC CARCINOMA
     Dosage: 50 MG/M2, 2/W
     Dates: start: 20070815, end: 20070801
  2. NEXIUM [Concomitant]
  3. METOCLOPRAMIDE /00041902/ (METOCLOPRAMIDE HYDROCHLORIDE) [Concomitant]
  4. COMPAZINE /00013304/ (PROCHLORPERAZINE MALEATE) [Concomitant]
  5. NEURONTIN [Concomitant]
  6. PREMARIN [Concomitant]
  7. METHADONE HCL [Concomitant]

REACTIONS (1)
  - INTERSTITIAL LUNG DISEASE [None]
